FAERS Safety Report 4513339-6 (Version None)
Quarter: 2004Q4

REPORT INFORMATION
  Report Type: 
  Country: None (occurrence: None)
  Receive Date: 20041130
  Receipt Date: 20040813
  Transmission Date: 20050328
  Serious: No
  Sender: FDA-Public Use
  Company Number: US-BRISTOL-MYERS SQUIBB COMPANY-12672507

PATIENT
  Sex: Male

DRUGS (1)
  1. ERBITUX [Suspect]
     Route: 042

REACTIONS (1)
  - INFUSION RELATED REACTION [None]
